FAERS Safety Report 5860793-3 (Version None)
Quarter: 2008Q3

REPORT INFORMATION
  Report Type: 
  Country: None (occurrence: None)
  Receive Date: 20080827
  Receipt Date: 20071126
  Transmission Date: 20090109
  Serious: No
  Sender: FDA-Public Use
  Company Number: US-ABBOTT-07P-163-0426709-00

PATIENT
  Age: 75 Year
  Sex: Male
  Weight: 90.8 kg

DRUGS (4)
  1. COATED PDS [Suspect]
     Indication: BLOOD CHOLESTEROL INCREASED
     Route: 048
     Dates: start: 20070901, end: 20071123
  2. LATANOPROST [Concomitant]
     Indication: GLAUCOMA
     Route: 047
  3. CLOPIDOGREL [Concomitant]
     Indication: PLATELET AGGREGATION ABNORMAL
     Route: 048
     Dates: start: 20070701
  4. METOPROLOL SUCCINATE [Concomitant]
     Indication: HYPERTENSION
     Route: 048

REACTIONS (3)
  - BURNING SENSATION [None]
  - OCULAR HYPERAEMIA [None]
  - WOUND [None]
